FAERS Safety Report 8163890 (Version 5)
Quarter: 2016Q4

REPORT INFORMATION
  Report Type: Spontaneous
  Country: US (occurrence: US)
  Receive Date: 20110930
  Receipt Date: 20161018
  Transmission Date: 20170207
  Serious: Yes (Other)
  Sender: FDA-Public Use
  Company Number: US-ASTRAZENECA-2011SE37533

PATIENT
  Age: 83 Year
  Sex: Female

DRUGS (7)
  1. TOPROL XL [Suspect]
     Active Substance: METOPROLOL SUCCINATE
     Dosage: 100.0MG UNKNOWN
     Route: 048
  2. ATACAND [Suspect]
     Active Substance: CANDESARTAN CILEXETIL
     Dosage: 16.0MG UNKNOWN
     Route: 048
  3. CRESTOR [Suspect]
     Active Substance: ROSUVASTATIN CALCIUM
     Route: 048
  4. CRESTOR [Suspect]
     Active Substance: ROSUVASTATIN CALCIUM
     Dosage: CUT BACK HER DAILY DOSE OF CRESTOR FROM 10 MG TO 5 MG ON HER OWN
     Route: 048
  5. CRESTOR [Suspect]
     Active Substance: ROSUVASTATIN CALCIUM
     Dosage: GENERIC
     Route: 048
  6. ARIMIDEX [Suspect]
     Active Substance: ANASTROZOLE
     Dosage: 1.0MG UNKNOWN
     Route: 048
  7. ATACAND [Suspect]
     Active Substance: CANDESARTAN CILEXETIL
     Dosage: 8.0MG UNKNOWN
     Route: 048

REACTIONS (6)
  - Neoplasm malignant [Unknown]
  - Intentional product misuse [Unknown]
  - Diverticulitis [Unknown]
  - Drug dose omission [Unknown]
  - Malaise [Unknown]
  - Hypertension [Unknown]
